FAERS Safety Report 7342960-5 (Version None)
Quarter: 2011Q1

REPORT INFORMATION
  Report Type: 
  Country: None (occurrence: None)
  Receive Date: 20110310
  Receipt Date: 20110225
  Transmission Date: 20110831
  Serious: Yes (Other)
  Sender: FDA-Public Use
  Company Number: PHHY2010CA87070

PATIENT
  Sex: Female

DRUGS (2)
  1. ACLASTA [Suspect]
     Indication: OSTEOPOROSIS
     Dates: start: 20100106
  2. ACLASTA [Suspect]
     Dates: start: 20110215

REACTIONS (6)
  - MUSCLE SPASMS [None]
  - PYREXIA [None]
  - INFLUENZA LIKE ILLNESS [None]
  - FATIGUE [None]
  - OESOPHAGEAL DISORDER [None]
  - HIATUS HERNIA [None]
